FAERS Safety Report 10019757 (Version 2)
Quarter: 2014Q1

REPORT INFORMATION
  Report Type: Spontaneous
  Country: US (occurrence: US)
  Receive Date: 20140318
  Receipt Date: 20140318
  Transmission Date: 20141002
  Serious: No
  Sender: FDA-Public Use
  Company Number: US-GALDERMA-US13004167

PATIENT
  Age: 27 Year
  Sex: Female

DRUGS (3)
  1. MIRVASO (BRIMONIDINE) TOPICAL GEL, 0.33% [Suspect]
     Indication: ACNE
     Dosage: 0.33%
     Route: 061
     Dates: start: 201310, end: 201310
  2. SODIUM SULFACETAMIDE [Concomitant]
     Route: 061
     Dates: start: 201203
  3. SPIRONOLACTONE [Concomitant]
     Dosage: 50 MG
     Route: 048
     Dates: start: 201308

REACTIONS (2)
  - Drug ineffective for unapproved indication [Unknown]
  - Off label use [Unknown]
